FAERS Safety Report 5965328-2 (Version None)
Quarter: 2008Q4

REPORT INFORMATION
  Report Type: 
  Country: None (occurrence: None)
  Receive Date: 20081125
  Receipt Date: 20081114
  Transmission Date: 20090506
  Serious: Yes (Other)
  Sender: FDA-Public Use
  Company Number: BR-ROCHE-597713

PATIENT
  Age: 28 Year
  Sex: Male

DRUGS (1)
  1. ROACUTAN [Suspect]
     Indication: DRUG USE FOR UNKNOWN INDICATION
     Dosage: FREQUENCY: ALTERNATING
     Route: 048
     Dates: end: 20081001

REACTIONS (2)
  - ARTHROPATHY [None]
  - LIGAMENT INJURY [None]
